FAERS Safety Report 7555084-9 (Version None)
Quarter: 2011Q2

REPORT INFORMATION
  Report Type: 
  Country: None (occurrence: None)
  Receive Date: 20110617
  Receipt Date: 20110606
  Transmission Date: 20111010
  Serious: Yes (Hospitalization)
  Sender: FDA-Public Use
  Company Number: US-BRISTOL-MYERS SQUIBB COMPANY-15806151

PATIENT
  Age: 55 Year
  Sex: Male

DRUGS (10)
  1. ATAZANAVIR [Suspect]
     Indication: HIV INFECTION
  2. INSULIN GLARGINE [Concomitant]
     Dosage: 1DF= 50 UNITS. QHS.
  3. LAMIVUDINE [Concomitant]
     Indication: HIV INFECTION
  4. CLONAZEPAM [Concomitant]
     Dosage: QHS.
  5. LABETALOL HCL [Concomitant]
  6. SPIRONOLACTONE [Concomitant]
  7. LISINOPRIL [Concomitant]
  8. ZIDOVUDINE [Concomitant]
     Indication: HIV INFECTION
  9. HYDROCHLOROTHIAZIDE [Concomitant]
  10. OXYCODONE HCL [Suspect]
     Indication: BACK PAIN
     Dosage: INITIAL DOSE 80MG DAILY, INCREASED TO 160MG DAILY.

REACTIONS (6)
  - CARDIAC ARREST [None]
  - ASTHENIA [None]
  - ELECTROCARDIOGRAM QT PROLONGED [None]
  - VENTRICULAR FIBRILLATION [None]
  - TORSADE DE POINTES [None]
  - NAUSEA [None]
